FAERS Safety Report 9540246 (Version 4)
Quarter: 2013Q4

REPORT INFORMATION
  Report Type: Report from Study
  Country: US (occurrence: US)
  Receive Date: 20130920
  Receipt Date: 20131220
  Transmission Date: 20140711
  Serious: Yes (Hospitalization)
  Sender: FDA-Public Use
  Company Number: US-ROCHE-1271799

PATIENT
  Age: 72 Year
  Sex: Male
  Weight: 61.1 kg

DRUGS (30)
  1. BEVACIZUMAB [Suspect]
     Indication: NON-SMALL CELL LUNG CANCER RECURRENT
     Dosage: DATE OF LAST DOSE PRIOR TO SAE: 14/AUG/2013 AND LAST DOSE TAKEN WAS 900 MG
     Route: 042
     Dates: start: 20130724
  2. CARBOPLATIN [Suspect]
     Indication: NON-SMALL CELL LUNG CANCER RECURRENT
     Dosage: DATE OF LAST DOSE PRIOR TO SAE: 14/AUG/2013 AND LAST DOSE TAKEN WAS 492 MG?MOST RECENT DOSE PRIOR TO
     Route: 042
     Dates: start: 20130724
  3. PACLITAXEL [Suspect]
     Indication: NON-SMALL CELL LUNG CANCER RECURRENT
     Dosage: DATE OF LAST DOSE PRIOR TO SAE: 14/AUG/2013 AND LAST DOSE TAKEN WAS 335 MG?MOST RECENT DOSE PRIOR TO
     Route: 042
     Dates: start: 20130724
  4. KEPPRA [Concomitant]
     Indication: PROPHYLAXIS
     Route: 048
     Dates: start: 20130612
  5. ZOFRAN [Concomitant]
     Indication: NAUSEA
     Route: 048
     Dates: start: 20130708
  6. DOXAZOSIN [Concomitant]
     Indication: BENIGN PROSTATIC HYPERPLASIA
     Route: 048
     Dates: start: 2005
  7. ZANTAC [Concomitant]
     Indication: NAUSEA
     Route: 048
     Dates: start: 20130814
  8. NORMAL SALINE [Concomitant]
     Indication: DEHYDRATION
     Route: 042
     Dates: start: 20130731, end: 20130804
  9. DEXAMETHASONE [Concomitant]
     Indication: PREMEDICATION
     Route: 042
     Dates: start: 20130814, end: 20130814
  10. DEXAMETHASONE [Concomitant]
     Route: 042
     Dates: start: 20130918, end: 20130918
  11. PEPCID [Concomitant]
     Indication: PREMEDICATION
     Route: 042
     Dates: start: 20130814, end: 20130814
  12. PEPCID [Concomitant]
     Route: 042
     Dates: start: 20130918, end: 20130918
  13. PALONOSETRON [Concomitant]
     Indication: PREMEDICATION
     Route: 042
     Dates: start: 20130814, end: 20130814
  14. PALONOSETRON [Concomitant]
     Route: 042
     Dates: start: 20130918, end: 20130918
  15. NEUPOGEN [Concomitant]
     Indication: WHITE BLOOD CELL COUNT DECREASED
     Route: 030
     Dates: start: 20130731, end: 20130804
  16. NEULASTA [Concomitant]
     Route: 030
     Dates: start: 20130814, end: 20130815
  17. DENOSUMAB [Concomitant]
     Indication: METASTASES TO BONE
     Route: 058
     Dates: start: 20130814, end: 20130815
  18. DOCUSATE SODIUM [Concomitant]
     Indication: HAEMORRHOIDS
     Route: 048
     Dates: start: 20130818
  19. DEMEROL [Concomitant]
     Indication: TREMOR
     Route: 048
     Dates: start: 20130818
  20. PHENERGAN [Concomitant]
     Indication: TREMOR
     Route: 048
     Dates: start: 20130818
  21. LOPERAMIDE [Concomitant]
     Indication: DIARRHOEA
     Route: 048
     Dates: start: 20130726
  22. ALUMINUM HYDROXIDE/MAGNESIUM OXIDE/SIMETHICONE [Concomitant]
     Indication: NAUSEA
     Route: 048
     Dates: start: 20130708
  23. FLUTICASONE PROPIONATE [Concomitant]
     Indication: HYPERSENSITIVITY
     Route: 045
     Dates: start: 20130905, end: 20130905
  24. AMOXICILLIN TRIHYDRATE/CLAVULANATE POTASSIUM [Concomitant]
     Indication: URINARY TRACT INFECTION
     Route: 042
     Dates: start: 20130906, end: 20130908
  25. ONDANSETRON [Concomitant]
     Indication: NAUSEA
     Route: 042
     Dates: start: 20130907, end: 20130907
  26. FINASTERIDE [Concomitant]
     Indication: BENIGN PROSTATIC HYPERPLASIA
     Route: 048
     Dates: start: 2004
  27. ASPIRIN [Concomitant]
     Route: 048
     Dates: start: 2010
  28. RESTORIL (UNITED STATES) [Concomitant]
     Indication: INSOMNIA
     Route: 048
     Dates: start: 20130731
  29. RANITIDINE [Concomitant]
     Indication: GASTROOESOPHAGEAL REFLUX DISEASE
     Route: 048
     Dates: start: 20130814
  30. PLACEBO [Suspect]
     Indication: NON-SMALL CELL LUNG CANCER
     Route: 048

REACTIONS (2)
  - Pneumatosis intestinalis [Recovered/Resolved]
  - Atrial fibrillation [Recovered/Resolved]
